FAERS Safety Report 6651983-0 (Version None)
Quarter: 2010Q1

REPORT INFORMATION
  Report Type: 
  Country: None (occurrence: None)
  Receive Date: 20100325
  Receipt Date: 20100323
  Transmission Date: 20100710
  Serious: Yes (Other)
  Sender: FDA-Public Use
  Company Number: PHHY2009BR58671

PATIENT
  Age: 68 Year
  Sex: Female

DRUGS (3)
  1. STALEVO 100 [Suspect]
     Dosage: 50/12.5/200 MG 5 TIMES DAILY
     Dates: start: 20081201
  2. STALEVO 100 [Suspect]
     Dosage: 100/25/200 FIVE TIMES DAILY
  3. MANTIDAN [Concomitant]

REACTIONS (5)
  - HYPERTHYROIDISM [None]
  - HYPOKINESIA [None]
  - HYPOTHYROIDISM [None]
  - MEMORY IMPAIRMENT [None]
  - THYROID OPERATION [None]
